FAERS Safety Report 5876609-5 (Version None)
Quarter: 2008Q3

REPORT INFORMATION
  Report Type: 
  Country: None (occurrence: None)
  Receive Date: 20080910
  Receipt Date: 20080611
  Transmission Date: 20090109
  Serious: Yes (Death)
  Sender: FDA-Public Use
  Company Number: JP-ROCHE-570514

PATIENT
  Sex: Male

DRUGS (4)
  1. VALGANCICLOVIR HCL [Suspect]
     Indication: PNEUMONIA CYTOMEGALOVIRAL
     Route: 048
     Dates: start: 20070401, end: 20070911
  2. EPIVIR [Concomitant]
     Route: 048
     Dates: start: 20070111, end: 20070911
  3. STOCRIN [Concomitant]
     Route: 048
     Dates: start: 20070111, end: 20070911
  4. VIREAD [Concomitant]
     Route: 048
     Dates: start: 20070111, end: 20070911

REACTIONS (1)
  - MENINGITIS CRYPTOCOCCAL [None]
